FAERS Safety Report 4976574-9 (Version None)
Quarter: 2006Q2

REPORT INFORMATION
  Report Type: 
  Country: None (occurrence: None)
  Receive Date: 20060419
  Receipt Date: 20050909
  Transmission Date: 20061013
  Serious: Yes (Death, Hospitalization, Disabling, Other)
  Sender: FDA-Public Use
  Company Number: US-MERCK-0509USA01331

PATIENT
  Age: 39 Year
  Sex: Male
  Weight: 195 kg

DRUGS (4)
  1. VIOXX [Suspect]
     Indication: BACK PAIN
     Route: 048
     Dates: start: 20031204, end: 20040201
  2. PHENTERMINE [Concomitant]
     Route: 065
  3. LASIX [Concomitant]
     Route: 048
  4. COREG [Concomitant]
     Route: 048

REACTIONS (34)
  - ADVERSE EVENT [None]
  - ANAEMIA [None]
  - ARTHRITIS BACTERIAL [None]
  - BUNDLE BRANCH BLOCK RIGHT [None]
  - CARDIAC FAILURE CONGESTIVE [None]
  - CARDIOMEGALY [None]
  - CELLULITIS [None]
  - CONGESTIVE CARDIOMYOPATHY [None]
  - DEEP VEIN THROMBOSIS [None]
  - FUNGAL INFECTION [None]
  - GASTROINTESTINAL INFECTION [None]
  - GENITAL HAEMORRHAGE [None]
  - HYPERGLYCAEMIA [None]
  - HYPERTENSION [None]
  - IMPAIRED HEALING [None]
  - LUNG CONSOLIDATION [None]
  - LUNG INFILTRATION [None]
  - MYOCARDIAL INFARCTION [None]
  - NORMOCHROMIC NORMOCYTIC ANAEMIA [None]
  - OEDEMA PERIPHERAL [None]
  - PNEUMONIA [None]
  - PULMONARY EMBOLISM [None]
  - PULMONARY OEDEMA [None]
  - RENAL FAILURE ACUTE [None]
  - RESPIRATORY FAILURE [None]
  - SCROTAL PAIN [None]
  - SKIN ULCER [None]
  - THROMBOCYTOPENIA [None]
  - VENTRICULAR HYPERTROPHY [None]
  - VENTRICULAR HYPOKINESIA [None]
  - WHITE BLOOD CELL COUNT INCREASED [None]
  - WOUND [None]
  - WOUND NECROSIS [None]
  - WOUND SECRETION [None]
